FAERS Safety Report 8336236-7 (Version None)
Quarter: 2012Q2

REPORT INFORMATION
  Report Type: 
  Country: None (occurrence: None)
  Receive Date: 20120501
  Receipt Date: 20120417
  Transmission Date: 20120825
  Serious: Yes (Hospitalization, Other)
  Sender: FDA-Public Use
  Company Number: 2011MA001953

PATIENT
  Sex: Male
  Weight: 65.7716 kg

DRUGS (48)
  1. ACTOS [Concomitant]
  2. EYE DROPS [Concomitant]
  3. GLUCERNA [Concomitant]
  4. POTASSIUM CHLORIDE [Concomitant]
  5. SPIRONOLACTONE [Concomitant]
  6. BOOST DIABETIC [Concomitant]
  7. DULCOLAX [Concomitant]
  8. MIRAPEX [Concomitant]
  9. VICODIN [Concomitant]
  10. VITAMIN D [Concomitant]
  11. LISINOPRIL [Concomitant]
  12. METOPROLOL TARTRATE [Concomitant]
  13. NORVASC [Concomitant]
  14. PRILOSEC [Concomitant]
  15. WARFARIN SODIUM [Concomitant]
  16. AUGMENTIN [Concomitant]
  17. ENSURE [Concomitant]
  18. INSULIN [Concomitant]
  19. MELATONIN [Concomitant]
  20. SERTRALINE HYDROCHLORIDE [Concomitant]
  21. SUPPLEMENTS [Concomitant]
  22. AMOXICILLIN [Concomitant]
  23. ATIVAN [Concomitant]
  24. DIGOXIN [Concomitant]
  25. DILAUDID [Concomitant]
  26. LOTRISONE [Concomitant]
  27. TRAZODONE HCL [Concomitant]
  28. TYLENOL (CAPLET) [Concomitant]
  29. AMLODIPINE [Concomitant]
  30. ANTIBIOTICS [Concomitant]
  31. HYDROCODONE BITARTRATE [Concomitant]
  32. IRON SUPPLEMENT [Concomitant]
  33. LEVAQUIN [Concomitant]
  34. SEROQUEL [Concomitant]
  35. THERAGRAM [Concomitant]
  36. TIZANIDINE [Concomitant]
  37. XENAZINE [Concomitant]
  38. METOCLOPRAMIDE [Suspect]
     Indication: DIABETIC GASTROPARESIS
     Dosage: 5 MG;QID;PO
     Route: 048
     Dates: start: 20010105, end: 20091220
  39. BACTRIM DS [Concomitant]
  40. FLUOXETINE [Concomitant]
  41. MACROBID [Concomitant]
  42. MULTI-VITAMINS [Concomitant]
  43. NITROGLYCERIN [Concomitant]
  44. ALPRAZOLAM [Concomitant]
  45. FLOMAX [Concomitant]
  46. HYDROCODONE BITARTRATE AND ACETAMINOPHEN [Concomitant]
  47. LASIX [Concomitant]
  48. SALINE LAXATIVE [Concomitant]

REACTIONS (117)
  - CONSTIPATION [None]
  - HICCUPS [None]
  - CHEST DISCOMFORT [None]
  - INCREASED UPPER AIRWAY SECRETION [None]
  - DYSURIA [None]
  - PAIN [None]
  - OROPHARYNGEAL PAIN [None]
  - CARDIAC VALVE VEGETATION [None]
  - ABDOMINAL PAIN [None]
  - FAECALOMA [None]
  - COAGULOPATHY [None]
  - CEREBRAL ATROPHY [None]
  - VENTRICULAR DYSFUNCTION [None]
  - THINKING ABNORMAL [None]
  - CEREBRAL DISORDER [None]
  - GALLBLADDER DISORDER [None]
  - CHOLELITHIASIS [None]
  - COLONIC POLYP [None]
  - BLOOD GLUCOSE INCREASED [None]
  - CHEST PAIN [None]
  - ANGINA PECTORIS [None]
  - FATIGUE [None]
  - THROMBOSIS [None]
  - CHILLS [None]
  - NOCTURIA [None]
  - DRUG DOSE OMISSION [None]
  - FEMUR FRACTURE [None]
  - TONGUE DISORDER [None]
  - VERTEBRAL FORAMINAL STENOSIS [None]
  - SCOLIOSIS [None]
  - PROTEIN C DEFICIENCY [None]
  - CARDIAC STRESS TEST ABNORMAL [None]
  - TARDIVE DYSKINESIA [None]
  - INTERNATIONAL NORMALISED RATIO INCREASED [None]
  - HYPERCOAGULATION [None]
  - HEADACHE [None]
  - TOOTH REPAIR [None]
  - HEARING IMPAIRED [None]
  - DYSPHAGIA [None]
  - PERIPHERAL PULSE DECREASED [None]
  - ANXIETY [None]
  - DECREASED ACTIVITY [None]
  - DYSPHONIA [None]
  - VOCAL CORD DISORDER [None]
  - MOVEMENT DISORDER [None]
  - RESTLESS LEGS SYNDROME [None]
  - TRICUSPID VALVE INCOMPETENCE [None]
  - SPONDYLOLISTHESIS [None]
  - MUSCULAR WEAKNESS [None]
  - HYPOTENSION [None]
  - OXYGEN SATURATION DECREASED [None]
  - DYSPNOEA [None]
  - VITAMIN D DEFICIENCY [None]
  - MUSCULOSKELETAL DISORDER [None]
  - MUSCLE SPASTICITY [None]
  - TREMOR [None]
  - AORTIC VALVE INCOMPETENCE [None]
  - DIASTOLIC DYSFUNCTION [None]
  - LEFT ATRIAL DILATATION [None]
  - MASTOIDITIS [None]
  - DIZZINESS [None]
  - VENTRICULAR EXTRASYSTOLES [None]
  - ATRIAL THROMBOSIS [None]
  - MUSCLE SPASMS [None]
  - GAIT DISTURBANCE [None]
  - NECK PAIN [None]
  - PAIN IN EXTREMITY [None]
  - ANAEMIA [None]
  - INTERVERTEBRAL DISC SPACE NARROWING [None]
  - BLOOD PRESSURE SYSTOLIC INCREASED [None]
  - BACK PAIN [None]
  - AORTIC STENOSIS [None]
  - DEEP VEIN THROMBOSIS [None]
  - WEIGHT DECREASED [None]
  - NAIL DISCOLOURATION [None]
  - ASPIRATION [None]
  - GINGIVAL INFECTION [None]
  - INTERVERTEBRAL DISC DEGENERATION [None]
  - MITRAL VALVE INCOMPETENCE [None]
  - SPINAL OSTEOARTHRITIS [None]
  - VENTRICULAR HYPOKINESIA [None]
  - SPEECH DISORDER [None]
  - PERICARDIAL EFFUSION [None]
  - FLANK PAIN [None]
  - SENSATION OF FOREIGN BODY [None]
  - PHARYNGEAL DISORDER [None]
  - CARDIAC FAILURE CONGESTIVE [None]
  - HYPOAESTHESIA [None]
  - ASTHENIA [None]
  - STRESS [None]
  - BENIGN PROSTATIC HYPERPLASIA [None]
  - BUNDLE BRANCH BLOCK LEFT [None]
  - PARKINSON'S DISEASE [None]
  - RADICULOPATHY [None]
  - EJECTION FRACTION DECREASED [None]
  - VIRAL INFECTION [None]
  - CHANGE OF BOWEL HABIT [None]
  - NODULE [None]
  - MUSCLE TWITCHING [None]
  - HIP ARTHROPLASTY [None]
  - RENAL FAILURE CHRONIC [None]
  - EMOTIONAL DISTRESS [None]
  - NERVE ROOT COMPRESSION [None]
  - INTESTINAL OBSTRUCTION [None]
  - FUNGAL SKIN INFECTION [None]
  - FALL [None]
  - URINARY TRACT INFECTION [None]
  - MALAISE [None]
  - PYREXIA [None]
  - PHARYNGEAL MASS [None]
  - LEFT VENTRICULAR HYPERTROPHY [None]
  - MUSCULOSKELETAL DISCOMFORT [None]
  - DYSARTHRIA [None]
  - INFECTION [None]
  - CARDIOACTIVE DRUG LEVEL DECREASED [None]
  - HEART VALVE CALCIFICATION [None]
  - WEIGHT INCREASED [None]
